FAERS Safety Report 8023690-3 (Version None)
Quarter: 2012Q1

REPORT INFORMATION
  Report Type: 
  Country: None (occurrence: None)
  Receive Date: 20120103
  Receipt Date: 20120103
  Transmission Date: 20120608
  Serious: Yes (Hospitalization)
  Sender: FDA-Public Use
  Company Number: None

PATIENT
  Sex: Female
  Weight: 48.18 kg

DRUGS (3)
  1. CARBOPLATIN [Suspect]
     Dosage: 900 MG
     Dates: end: 20111202
  2. BEVACIZUMAB (RHUMAB VEGF) [Suspect]
     Dosage: 727 MG
     Dates: end: 20111202
  3. TAXOL [Suspect]
     Dosage: 282 MG
     Dates: end: 20111202

REACTIONS (11)
  - HAEMOPTYSIS [None]
  - HYPOKALAEMIA [None]
  - HYPOCALCAEMIA [None]
  - HYPOMAGNESAEMIA [None]
  - ANAEMIA [None]
  - THROMBOCYTOSIS [None]
  - MUCOSAL INFLAMMATION [None]
  - HYPOPHOSPHATAEMIA [None]
  - PYREXIA [None]
  - NEUTROPENIA [None]
  - CLOSTRIDIUM DIFFICILE COLITIS [None]
